FAERS Safety Report 4426260-9 (Version None)
Quarter: 2004Q3

REPORT INFORMATION
  Report Type: 
  Country: None (occurrence: None)
  Receive Date: 20040811
  Receipt Date: 20040803
  Transmission Date: 20050211
  Serious: Yes (Hospitalization)
  Sender: FDA-Public Use
  Company Number: GBWYE947104AUG04

PATIENT
  Age: 58 Year
  Sex: Male

DRUGS (8)
  1. SIROLIMUS (SIROLIMUS, UNSPEC, 0) [Suspect]
     Indication: RENAL TRANSPLANT
     Dosage: 4 MG 1X PER 1 DAY
     Route: 048
     Dates: start: 20040726
  2. MYCOPHENOLATE MOFETIL (MYCOPHENOLATE MOFETIL) [Concomitant]
  3. FUROSEMIDE [Concomitant]
  4. DOXAZOSIN (DOXAZOSIN) [Concomitant]
  5. ASPIRIN [Concomitant]
  6. FLUVASTATIN (FLUVASTATIN) [Concomitant]
  7. CANDESARTAN (CANDESARTAN) [Concomitant]
  8. DIPROBASE (CETOMACROGOL/CETOSTEARYL ALCOHOL/PARAFFIN, LIQUID/WHITE SOF [Concomitant]

REACTIONS (3)
  - DEHYDRATION [None]
  - HYPOTENSION [None]
  - INFECTION [None]
